FAERS Safety Report 16066762 (Version 3)
Quarter: 2019Q2

REPORT INFORMATION
  Report Type: Spontaneous
  Country: PL (occurrence: PL)
  Receive Date: 20190313
  Receipt Date: 20190418
  Transmission Date: 20190711
  Serious: Yes (Hospitalization)
  Sender: FDA-Public Use
  Company Number: PL-MYLANLABS-2019M1022728

PATIENT
  Age: 10 Year
  Sex: Female

DRUGS (11)
  1. CLOTRIMAZOLE / BETAMETH [Suspect]
     Active Substance: BETAMETHASONE DIPROPIONATE\CLOTRIMAZOLE
     Indication: ACUTE HAEMORRHAGIC OEDEMA OF INFANCY
     Dosage: UNK
     Route: 061
     Dates: start: 201512
  2. SODIUM CHLORIDE. [Concomitant]
     Active Substance: SODIUM CHLORIDE
     Indication: VIRAL UPPER RESPIRATORY TRACT INFECTION
     Dosage: UNK
  3. BETAMETHASONE DIPROPIONATE;CLOTRIMAZOLE;GENTA [Suspect]
     Active Substance: BETAMETHASONE DIPROPIONATE\CLOTRIMAZOLE\GENTAMICIN SULFATE
     Indication: ACUTE HAEMORRHAGIC OEDEMA OF INFANCY
     Dosage: UNK
     Route: 061
     Dates: start: 201512
  4. BETAMETHASONE DIPROPIONATE. [Suspect]
     Active Substance: BETAMETHASONE DIPROPIONATE
     Indication: ACUTE HAEMORRHAGIC OEDEMA OF INFANCY
     Dosage: UNK
     Route: 061
     Dates: start: 201512
  5. HYDROCORTISONE. [Suspect]
     Active Substance: HYDROCORTISONE
     Indication: ACUTE HAEMORRHAGIC OEDEMA OF INFANCY
     Dosage: UNK
     Route: 061
     Dates: start: 201512
  6. CLOTRIMAZOLE. [Suspect]
     Active Substance: CLOTRIMAZOLE
     Indication: ACUTE HAEMORRHAGIC OEDEMA OF INFANCY
     Dosage: UNK
  7. CLOTRIMAZOLE. [Suspect]
     Active Substance: CLOTRIMAZOLE
     Dosage: UNK
     Route: 061
     Dates: start: 201512
  8. GENTAMICIN. [Suspect]
     Active Substance: GENTAMICIN
     Indication: ACUTE HAEMORRHAGIC OEDEMA OF INFANCY
     Dosage: UNK
     Route: 061
     Dates: start: 201512
  9. AZITHROMYCIN ANHYDROUS. [Suspect]
     Active Substance: AZITHROMYCIN ANHYDROUS
     Indication: ACUTE HAEMORRHAGIC OEDEMA OF INFANCY
     Dosage: UNK
     Route: 048
     Dates: start: 201512
  10. BETAMETHASONE DIPROPIONATE. [Suspect]
     Active Substance: BETAMETHASONE DIPROPIONATE
     Dosage: UNK
  11. BETAMETHASONE DIPROPIONATE W/GENTAM/00619001/ [Suspect]
     Active Substance: BETAMETHASONE DIPROPIONATE\GENTAMICIN SULFATE
     Indication: ACUTE HAEMORRHAGIC OEDEMA OF INFANCY
     Dosage: UNK
     Route: 061
     Dates: start: 201512

REACTIONS (1)
  - Drug ineffective [Unknown]

NARRATIVE: CASE EVENT DATE: 201512
